FAERS Safety Report 6434444-3 (Version None)
Quarter: 2009Q4

REPORT INFORMATION
  Report Type: 
  Country: None (occurrence: None)
  Receive Date: 20091110
  Receipt Date: 20091029
  Transmission Date: 20100525
  Serious: Yes (Life-Threatening)
  Sender: FDA-Public Use
  Company Number: JP-PFIZER INC-2009287477

PATIENT
  Age: 73 Year
  Sex: Male

DRUGS (2)
  1. SUNITINIB MALATE [Suspect]
     Indication: RENAL CELL CARCINOMA
     Dosage: 50 MG, 1X/DAY
     Route: 048
     Dates: start: 20091006, end: 20091008
  2. SORAFENIB TOSILATE [Concomitant]
     Dosage: 400 MG, 1X/DAY
     Route: 048
     Dates: start: 20081107, end: 20091004

REACTIONS (1)
  - MYOCARDIAL INFARCTION [None]
